FAERS Safety Report 12984878 (Version 2)
Quarter: 2018Q2

REPORT INFORMATION
  Report Type: Spontaneous
  Country: US (occurrence: US)
  Receive Date: 20161129
  Receipt Date: 20180515
  Transmission Date: 20180711
  Serious: Yes (Hospitalization, Disabling)
  Sender: FDA-Public Use
  Company Number: US-PURDUE-USA-2016-0133904

PATIENT
  Age: 50 Year
  Sex: Female

DRUGS (2)
  1. HYDROCODONE BITARTRATE (SIMILAR TO NDA 206627) [Concomitant]
     Active Substance: HYDROCODONE BITARTRATE
     Indication: INTERVERTEBRAL DISC DEGENERATION
     Dosage: 5 DF, DAILY
     Route: 048
  2. HYSINGLA ER [Suspect]
     Active Substance: HYDROCODONE BITARTRATE
     Indication: INTERVERTEBRAL DISC DEGENERATION
     Dosage: 30 MG, Q24H
     Route: 048
     Dates: start: 20160811, end: 20160811

REACTIONS (18)
  - Anxiety [Unknown]
  - Choking [Recovered/Resolved]
  - Headache [Unknown]
  - Productive cough [Unknown]
  - Thirst [Unknown]
  - Obstruction [Recovered/Resolved]
  - Dyspnoea [Unknown]
  - Dehydration [Unknown]
  - Panic reaction [Unknown]
  - Throat irritation [Unknown]
  - Fatigue [Unknown]
  - Cough [Unknown]
  - Vomiting [Unknown]
  - Dysphagia [Unknown]
  - Dysphonia [Unknown]
  - Foreign body in respiratory tract [Recovered/Resolved]
  - Oropharyngeal pain [Unknown]
  - Abdominal pain upper [Unknown]

NARRATIVE: CASE EVENT DATE: 20160811
